FAERS Safety Report 18506859 (Version 1)
Quarter: 2020Q4

REPORT INFORMATION
  Report Type: Spontaneous
  Country: US (occurrence: US)
  Receive Date: 20201114
  Receipt Date: 20201114
  Transmission Date: 20210114
  Serious: Yes (Other)
  Sender: FDA-Public Use
  Company Number: None

PATIENT
  Sex: Male

DRUGS (1)
  1. KETOCONAZOLE SHAMPOO [Suspect]
     Active Substance: KETOCONAZOLE
     Indication: PRODUCT USED FOR UNKNOWN INDICATION
     Dosage: ?          OTHER FREQUENCY:EVERY OTHER DAY;?
     Route: 061

REACTIONS (5)
  - Anger [None]
  - Liver disorder [None]
  - Hepatic pain [None]
  - Irritability [None]
  - Skin injury [None]

NARRATIVE: CASE EVENT DATE: 20200107
